FAERS Safety Report 10716337 (Version 1)
Quarter: 2015Q1

REPORT INFORMATION
  Report Type: Spontaneous
  Country: US (occurrence: None)
  Receive Date: 20150115
  Receipt Date: 20150115
  Transmission Date: 20150721
  Serious: Yes (Hospitalization)
  Sender: FDA-Public Use
  Company Number: None

PATIENT
  Age: 61 Year
  Sex: Female
  Weight: 72.58 kg

DRUGS (20)
  1. SOVALDI [Suspect]
     Active Substance: SOFOSBUVIR
     Indication: HEPATITIS C
     Route: 048
     Dates: start: 20141001
  2. AMLODIPINE [Concomitant]
     Active Substance: AMLODIPINE BESYLATE
  3. VITAMIN D [Concomitant]
     Active Substance: CHOLECALCIFEROL
  4. COLCHICINE. [Concomitant]
     Active Substance: COLCHICINE
  5. ASPIRIN. [Concomitant]
     Active Substance: ASPIRIN
  6. LOVAZA [Concomitant]
     Active Substance: OMEGA-3-ACID ETHYL ESTERS
  7. PROTONIX [Concomitant]
     Active Substance: PANTOPRAZOLE SODIUM
  8. SIMEPREVIR 150 [Suspect]
     Active Substance: SIMEPREVIR
     Indication: HEPATITIS C
     Route: 048
     Dates: start: 20141001
  9. ATENOLOL. [Concomitant]
     Active Substance: ATENOLOL
  10. PREDNISONE. [Concomitant]
     Active Substance: PREDNISONE
  11. NASONEX [Concomitant]
     Active Substance: MOMETASONE FUROATE
  12. MIRALAX [Concomitant]
     Active Substance: POLYETHYLENE GLYCOL 3350
  13. PROGRAF [Concomitant]
     Active Substance: TACROLIMUS\TACROLIMUS ANHYDROUS
  14. ANUSOL [Concomitant]
  15. ALBUTEROL. [Concomitant]
     Active Substance: ALBUTEROL
  16. ALLOPURINOL. [Concomitant]
     Active Substance: ALLOPURINOL
  17. VITAMIN B12 [Concomitant]
     Active Substance: CYANOCOBALAMIN
  18. ZETIA [Concomitant]
     Active Substance: EZETIMIBE
  19. LASIX [Concomitant]
     Active Substance: FUROSEMIDE
  20. DILTIAZEM [Concomitant]
     Active Substance: DILTIAZEM

REACTIONS (3)
  - Arthritis [None]
  - Acute kidney injury [None]
  - Drug level increased [None]

NARRATIVE: CASE EVENT DATE: 20141017
